FAERS Safety Report 8941605 (Version 1)
Quarter: 2012Q4

REPORT INFORMATION
  Report Type: 
  Country: ES (occurrence: ES)
  Receive Date: 20121203
  Receipt Date: 20121203
  Transmission Date: 20130627
  Serious: Yes (Hospitalization)
  Sender: FDA-Public Use
  Company Number: ES-SANOFI-AVENTIS-2012SA086118

PATIENT
  Age: 31 Year
  Sex: Female

DRUGS (6)
  1. RIFATER [Suspect]
     Indication: BONE TUBERCULOSIS
     Route: 048
     Dates: start: 20120628, end: 20120710
  2. RIFATER [Suspect]
     Indication: BONE TUBERCULOSIS
     Route: 065
     Dates: start: 20120727
  3. MYAMBUTOL [Concomitant]
     Indication: BONE TUBERCULOSIS
     Dosage: strength; 400 mg
     Route: 048
     Dates: start: 20120628, end: 20120710
  4. PREDNISONA [Concomitant]
     Indication: BONE TUBERCULOSIS
     Route: 048
     Dates: start: 20120628, end: 20120713
  5. LORAZEPAM [Concomitant]
     Indication: INSOMNIA
     Route: 048
     Dates: start: 2012, end: 20120706
  6. FENTANYL [Concomitant]
     Indication: PAIN
     Route: 062
     Dates: start: 20120620, end: 20120702

REACTIONS (1)
  - Anxiety [Recovered/Resolved]
